FAERS Safety Report 11856381 (Version 1)
Quarter: 2015Q4

REPORT INFORMATION
  Report Type: Spontaneous
  Country: CN (occurrence: CN)
  Receive Date: 20151221
  Receipt Date: 20151221
  Transmission Date: 20160305
  Serious: Yes (Other)
  Sender: FDA-Public Use
  Company Number: CN-ASTELLAS-2015US047539

PATIENT
  Age: 23 Year
  Weight: 58 kg

DRUGS (1)
  1. PROGRAF [Suspect]
     Active Substance: TACROLIMUS\TACROLIMUS ANHYDROUS
     Indication: BONE MARROW TRANSPLANT
     Dosage: 1 MG DAILY, TWICE DAILY
     Route: 048

REACTIONS (9)
  - Herpes virus infection [Recovered/Resolved]
  - Complications of bone marrow transplant [Recovered/Resolved]
  - Immune system disorder [Recovered/Resolved]
  - Ocular vascular disorder [Recovered/Resolved]
  - Full blood count abnormal [Recovered/Resolved]
  - Transplantation complication [Recovered/Resolved]
  - Inflammation [Recovered/Resolved]
  - Pyrexia [Recovered/Resolved]
  - Off label use [Recovered/Resolved]
